FAERS Safety Report 24046980 (Version 1)
Quarter: 2024Q3

REPORT INFORMATION
  Report Type: Spontaneous
  Country: US (occurrence: US)
  Receive Date: 20240703
  Receipt Date: 20240703
  Transmission Date: 20241016
  Serious: No
  Sender: LEXICON PHARMACEUTICALS
  Company Number: US-LEX-000337

PATIENT
  Age: 76 Year
  Sex: Female

DRUGS (1)
  1. INPEFA [Suspect]
     Active Substance: SOTAGLIFLOZIN
     Indication: Cardiac failure
     Route: 048
     Dates: start: 20240514

REACTIONS (2)
  - Nausea [Unknown]
  - Vomiting [Unknown]
